FAERS Safety Report 18547771 (Version 1)
Quarter: 2020Q4

REPORT INFORMATION
  Report Type: Spontaneous
  Country: US (occurrence: US)
  Receive Date: 20201125
  Receipt Date: 20201125
  Transmission Date: 20210114
  Serious: No
  Sender: FDA-Public Use
  Company Number: US-ELI_LILLY_AND_COMPANY-US202010012167

PATIENT
  Age: 24 Year
  Sex: Male

DRUGS (2)
  1. SUMATRIPTAN. [Concomitant]
     Active Substance: SUMATRIPTAN
  2. EMGALITY [Suspect]
     Active Substance: GALCANEZUMAB-GNLM
     Indication: PRODUCT USED FOR UNKNOWN INDICATION
     Dosage: 1 DOSAGE FORM, UNKNOWN
     Route: 065
     Dates: start: 202006

REACTIONS (3)
  - Injection site rash [Not Recovered/Not Resolved]
  - Underdose [Unknown]
  - Speech disorder [Unknown]

NARRATIVE: CASE EVENT DATE: 20201024
